FAERS Safety Report 9886228 (Version 1)
Quarter: 2014Q1

REPORT INFORMATION
  Report Type: Spontaneous
  Country: CA (occurrence: CA)
  Receive Date: 20140210
  Receipt Date: 20140210
  Transmission Date: 20141002
  Serious: Yes (Hospitalization)
  Sender: FDA-Public Use
  Company Number: CA-B.I. PHARMACEUTICALS,INC./RIDGEFIELD-2014-BI-05691CN

PATIENT
  Age: 80 Year
  Sex: Male
  Weight: 95 kg

DRUGS (13)
  1. PRADAXA [Suspect]
     Indication: PRODUCT USED FOR UNKNOWN INDICATION
     Dosage: 220 MG
     Route: 048
  2. AMIODARONE [Suspect]
     Indication: PRODUCT USED FOR UNKNOWN INDICATION
     Dosage: 100 MG
     Route: 048
  3. CARVEDILOL [Concomitant]
  4. FUROSEMIDE [Concomitant]
  5. LAMISIL [Concomitant]
  6. LEVOTHYROXINE [Concomitant]
  7. PENNSAID [Concomitant]
     Dosage: FORMULATION : SOLUTION TOPICAL.
  8. RAMIPRIL [Concomitant]
  9. ROSUVASTATIN [Concomitant]
  10. SPIRONOLACTONE [Concomitant]
  11. TRAMACET [Concomitant]
  12. TYLENOL [Concomitant]
     Indication: ARTHRALGIA
     Dosage: FORMULATION : TABLET (EXTENDED RELEASE)
  13. VOLTAREN [Concomitant]

REACTIONS (2)
  - Haemorrhoids [Recovered/Resolved]
  - Lower gastrointestinal haemorrhage [Recovered/Resolved]
